FAERS Safety Report 5108996-X (Version None)
Quarter: 2006Q3

REPORT INFORMATION
  Report Type: 
  Country: None (occurrence: None)
  Receive Date: 20060918
  Receipt Date: 20060831
  Transmission Date: 20061208
  Serious: Yes (Other)
  Sender: FDA-Public Use
  Company Number: US200609000117

PATIENT
  Age: 77 Year
  Sex: Female

DRUGS (10)
  1. FORTEO [Suspect]
     Dosage: 20 UG
     Dates: start: 20060707, end: 20060804
  2. FORTEO [Concomitant]
  3. ASPIRIN [Concomitant]
  4. LOTEMAX [Concomitant]
  5. LEXAPRO /USA/ (ESCITALOPRAM) [Concomitant]
  6. DETROL - SLOW RELEASE (TOLTERODINE L-TARTRATE) [Concomitant]
  7. SEROQUEL [Concomitant]
  8. CELEBREX [Concomitant]
  9. ATENOLOL [Concomitant]
  10. VERAPAMIL - SLOW RELEASE (VERAPAMIL HYDROCHLORIDE) [Concomitant]

REACTIONS (3)
  - ABNORMAL BEHAVIOUR [None]
  - DELIRIUM [None]
  - IRRITABILITY [None]
